FAERS Safety Report 5936892-4 (Version None)
Quarter: 2008Q4

REPORT INFORMATION
  Report Type: 
  Country: None (occurrence: None)
  Receive Date: 20081031
  Receipt Date: 20081020
  Transmission Date: 20090506
  Serious: Yes (Hospitalization)
  Sender: FDA-Public Use
  Company Number: US-JNJFOC-20081005219

PATIENT
  Sex: Male

DRUGS (16)
  1. DURAGESIC-100 [Suspect]
     Route: 062
  2. DURAGESIC-100 [Suspect]
     Route: 062
  3. DURAGESIC-100 [Suspect]
     Indication: MIGRAINE
     Route: 062
  4. PERCOCET [Suspect]
  5. PERCOCET [Suspect]
  6. PERCOCET [Suspect]
  7. PERCOCET [Suspect]
  8. PERCOCET [Suspect]
  9. PERCOCET [Suspect]
  10. PERCOCET [Suspect]
     Indication: MIGRAINE
  11. ACTIQ [Suspect]
     Route: 048
  12. ACTIQ [Suspect]
     Route: 048
  13. ACTIQ [Suspect]
     Route: 048
  14. ACTIQ [Suspect]
     Route: 048
  15. ACTIQ [Suspect]
     Route: 048
  16. ACTIQ [Suspect]
     Indication: MIGRAINE
     Route: 048

REACTIONS (8)
  - ATAXIA [None]
  - BRADYPHRENIA [None]
  - DRUG DEPENDENCE [None]
  - DYSARTHRIA [None]
  - FATIGUE [None]
  - NYSTAGMUS [None]
  - OFF LABEL USE [None]
  - TOOTH DISORDER [None]
